FAERS Safety Report 6064909-8 (Version None)
Quarter: 2009Q1

REPORT INFORMATION
  Report Type: 
  Country: None (occurrence: None)
  Receive Date: 20090204
  Receipt Date: 20090130
  Transmission Date: 20090719
  Serious: Yes (Hospitalization)
  Sender: FDA-Public Use
  Company Number: FR-JNJFOC-20090106676

PATIENT
  Age: 48 Year
  Sex: Male

DRUGS (4)
  1. OFLOCET [Suspect]
     Indication: BILE DUCT STENOSIS
     Route: 048
  2. FLAGYL [Suspect]
     Indication: BILE DUCT STENOSIS
     Route: 048
  3. TIBERAL [Concomitant]
     Indication: BILE DUCT STENOSIS
     Route: 042
  4. CEFTRIAXONE [Concomitant]
     Indication: BILE DUCT STENOSIS
     Route: 042

REACTIONS (3)
  - HEADACHE [None]
  - NAUSEA [None]
  - VERTIGO [None]
